FAERS Safety Report 25359243 (Version 1)
Quarter: 2025Q2

REPORT INFORMATION
  Report Type: Spontaneous
  Country: JP (occurrence: JP)
  Receive Date: 20250526
  Receipt Date: 20250526
  Transmission Date: 20250717
  Serious: Yes (Hospitalization)
  Sender: MERCK SHARP & DOHME LLC
  Company Number: JP-MSD-2412JPN004276J

PATIENT
  Age: 58 Year
  Sex: Male
  Weight: 84.4 kg

DRUGS (7)
  1. JANUVIA [Suspect]
     Active Substance: SITAGLIPTIN PHOSPHATE
     Indication: Type 2 diabetes mellitus
     Dosage: DOSE DESCRIPTION : 50 MILLIGRAM, QD,AFTER BREAKFAST?DAILY DOSE : 50 MILLIGRAM
     Route: 048
     Dates: start: 20220929
  2. MICARDIS [Concomitant]
     Active Substance: TELMISARTAN
     Indication: Hypertension
     Dosage: DOSE DESCRIPTION : 20 MILLIGRAM, QD, AFTER BREAKFAST?DAILY DOSE : 20 MILLIGRAM
     Route: 048
     Dates: start: 2011
  3. NORVASC [Concomitant]
     Active Substance: AMLODIPINE BESYLATE
     Indication: Hypertension
     Dosage: DOSE DESCRIPTION : 5 MILLIGRAM, QD, AFTER BREAKFAST?DAILY DOSE : 5 MILLIGRAM
     Route: 048
     Dates: start: 2011
  4. CRESTOR [Concomitant]
     Active Substance: ROSUVASTATIN CALCIUM
     Indication: Dyslipidaemia
     Dosage: DOSE DESCRIPTION : 2.5 MILLIGRAM, QD, AFTER BREAKFAST?DAILY DOSE : 2.5 MILLIGRAM
     Route: 048
     Dates: start: 2011
  5. FEBUXOSTAT [Concomitant]
     Active Substance: FEBUXOSTAT
     Indication: Hyperuricaemia
     Dosage: DOSE DESCRIPTION : 10 MILLIGRAM, QD, AFTER BREAKFAST?DAILY DOSE : 10 MILLIGRAM
     Route: 048
     Dates: start: 2011
  6. BROMFENAC SODIUM [Concomitant]
     Active Substance: BROMFENAC SODIUM
     Indication: Retinal vein occlusion
     Route: 047
  7. TIMOLOL [Concomitant]
     Active Substance: TIMOLOL
     Indication: Prophylaxis
     Route: 047

REACTIONS (4)
  - Road traffic accident [Recovering/Resolving]
  - Foot fracture [Recovered/Resolved]
  - Contraindicated product administered [Unknown]
  - Fall [Recovering/Resolving]

NARRATIVE: CASE EVENT DATE: 20240617
